FAERS Safety Report 5164298-7 (Version None)
Quarter: 2006Q4

REPORT INFORMATION
  Report Type: 
  Country: None (occurrence: None)
  Receive Date: 20061129
  Receipt Date: 20061129
  Transmission Date: 20070319
  Serious: Yes (Death)
  Sender: FDA-Public Use
  Company Number: None

PATIENT
  Age: 60 Year
  Sex: Female
  Weight: 81.6475 kg

DRUGS (2)
  1. NAPROXEN [Suspect]
     Indication: INFLAMMATION
     Dosage: 1 TABLET BY MOUTH TWICE PER DAY PO
     Route: 048
     Dates: start: 20060817, end: 20061019
  2. NAPROXEN [Suspect]
     Indication: PAIN IN EXTREMITY
     Dosage: 1 TABLET BY MOUTH TWICE PER DAY PO
     Route: 048
     Dates: start: 20060817, end: 20061019

REACTIONS (5)
  - CHEST PAIN [None]
  - HYPERHIDROSIS [None]
  - NAUSEA [None]
  - PULSE ABSENT [None]
  - SUDDEN CARDIAC DEATH [None]
